FAERS Safety Report 13370003 (Version 1)
Quarter: 2017Q1

REPORT INFORMATION
  Report Type: Spontaneous
  Country: US (occurrence: US)
  Receive Date: 20170324
  Receipt Date: 20170324
  Transmission Date: 20170429
  Serious: No
  Sender: FDA-Public Use
  Company Number: US-ROCHE-1281308

PATIENT
  Sex: Female

DRUGS (1)
  1. XOLAIR [Suspect]
     Active Substance: OMALIZUMAB
     Indication: ASTHMA
     Dosage: EVERY TWO WEEKS
     Route: 065
     Dates: start: 2009

REACTIONS (3)
  - Feeling hot [Unknown]
  - Fatigue [Unknown]
  - Somnolence [Unknown]
